FAERS Safety Report 8091060-8 (Version None)
Quarter: 2012Q1

REPORT INFORMATION
  Report Type: 
  Country: None (occurrence: None)
  Receive Date: 20120131
  Receipt Date: 20120123
  Transmission Date: 20120608
  Serious: Yes (Hospitalization, Other)
  Sender: FDA-Public Use
  Company Number: CA-SHIRE-ALL1-2012-00439

PATIENT
  Age: 8 Year
  Sex: Female
  Weight: 23 kg

DRUGS (2)
  1. VYVANSE [Suspect]
     Indication: PRODUCT USED FOR UNKNOWN INDICATION
     Dosage: 60 MG, 1X/DAY:QD
     Route: 048
  2. MELATONIN [Concomitant]
     Indication: PRODUCT USED FOR UNKNOWN INDICATION
     Dosage: UNK, UNKNOWN
     Route: 048

REACTIONS (16)
  - SEXUAL DYSFUNCTION [None]
  - SPEECH DISORDER [None]
  - HYPERSEXUALITY [None]
  - PHYSICAL ABUSE [None]
  - IRRITABILITY [None]
  - CONDITION AGGRAVATED [None]
  - EUPHORIC MOOD [None]
  - INSOMNIA [None]
  - SUICIDAL IDEATION [None]
  - SELF-INJURIOUS IDEATION [None]
  - IMPULSIVE BEHAVIOUR [None]
  - ANGER [None]
  - VERBAL ABUSE [None]
  - ABNORMAL BEHAVIOUR [None]
  - GRANDIOSITY [None]
  - AGGRESSION [None]
